FAERS Safety Report 22054798 (Version 1)
Quarter: 2023Q1

REPORT INFORMATION
  Report Type: Spontaneous
  Country: IT (occurrence: IT)
  Receive Date: 20230302
  Receipt Date: 20230302
  Transmission Date: 20230418
  Serious: Yes (Other)
  Sender: FDA-Public Use
  Company Number: IT-ELI_LILLY_AND_COMPANY-IT202302011295

PATIENT
  Age: 73 Year
  Sex: Female

DRUGS (4)
  1. TERIPARATIDE [Suspect]
     Active Substance: TERIPARATIDE
     Indication: Product used for unknown indication
     Dosage: UNK, UNKNOWN
     Route: 065
     Dates: start: 20220325
  2. BISOPROLOL [Concomitant]
     Active Substance: BISOPROLOL
     Indication: Presyncope
     Dosage: 1.25 MG, EACH MORNING
     Route: 065
  3. NEXIUM I.V. [Concomitant]
     Active Substance: ESOMEPRAZOLE SODIUM
     Indication: Oesophagitis
  4. CORTISONE [Concomitant]
     Active Substance: CORTISONE
     Indication: Lumbar vertebral fracture

REACTIONS (8)
  - Lumbar vertebral fracture [Unknown]
  - Injection site erythema [Unknown]
  - Injection site swelling [Unknown]
  - Injection site bruising [Unknown]
  - Injection site haematoma [Unknown]
  - Injection site oedema [Unknown]
  - Injection site haemorrhage [Unknown]
  - Pain [Unknown]

NARRATIVE: CASE EVENT DATE: 20230105
